FAERS Safety Report 4578150-9 (Version None)
Quarter: 2005Q1

REPORT INFORMATION
  Report Type: 
  Country: None (occurrence: None)
  Receive Date: 20050211
  Receipt Date: 20050201
  Transmission Date: 20050727
  Serious: Yes (Hospitalization)
  Sender: FDA-Public Use
  Company Number: US-JNJFOC-20050200946

PATIENT
  Sex: Female

DRUGS (4)
  1. RISPERDAL [Suspect]
     Indication: SCHIZOPHRENIA
     Route: 049
     Dates: start: 20041104, end: 20041109
  2. CLOZAPINE [Suspect]
     Route: 049
  3. CLOZAPINE [Suspect]
     Indication: SCHIZOPHRENIA
     Dosage: (DRUG WAS STOPPED ON 25-OCT-04 AND RESTARTED ON 09-NOV-04.)
     Route: 049
  4. SEROQUEL [Concomitant]
     Dates: start: 20041103, end: 20041103

REACTIONS (5)
  - ARRHYTHMIA [None]
  - CARDIAC FAILURE CONGESTIVE [None]
  - COLD SWEAT [None]
  - FALL [None]
  - SEDATION [None]
